FAERS Safety Report 14037697 (Version 6)
Quarter: 2019Q4

REPORT INFORMATION
  Report Type: Report from Study
  Country: CA (occurrence: CA)
  Receive Date: 20171004
  Receipt Date: 20191218
  Transmission Date: 20200122
  Serious: Yes (Hospitalization, Other)
  Sender: FDA-Public Use
  Company Number: PHHY2017CA128201

PATIENT
  Age: 83 Year
  Sex: Male
  Weight: 95.8 kg

DRUGS (18)
  1. BISOPROLOL [Concomitant]
     Active Substance: BISOPROLOL
     Indication: CARDIAC FAILURE
     Dosage: 10 MG, UNK
     Route: 048
     Dates: start: 20151106
  2. ENTRESTO [Suspect]
     Active Substance: SACUBITRIL\VALSARTAN
     Dosage: 3 DF (49/51 MG  SACUBITRIL/VALSARTAN), UNK
     Route: 048
     Dates: start: 20161221, end: 20161227
  3. ENTRESTO [Suspect]
     Active Substance: SACUBITRIL\VALSARTAN
     Dosage: 4 DF (49/51 MG  SACUBITRIL/VALSARTAN), UNK
     Route: 048
     Dates: start: 20180611, end: 20180626
  4. APIXABAN [Concomitant]
     Active Substance: APIXABAN
     Indication: CARDIAC FAILURE
     Dosage: 5 MG, UNK
     Route: 048
     Dates: start: 20151106
  5. FUROSEMIDE. [Concomitant]
     Active Substance: FUROSEMIDE
     Indication: CARDIAC FAILURE
     Dosage: 40 MG, UNK
     Route: 048
     Dates: start: 20170208
  6. ENTRESTO [Suspect]
     Active Substance: SACUBITRIL\VALSARTAN
     Dosage: 4 DF (49/51 MG  SACUBITRIL/VALSARTAN), UNK
     Route: 048
     Dates: start: 20161228, end: 20180331
  7. ENTRESTO [Suspect]
     Active Substance: SACUBITRIL\VALSARTAN
     Dosage: 4 DF (97MG SACUBITRIL /103MGVALSARTAN), UNK
     Route: 048
     Dates: start: 20180701
  8. SPIRONOLACTONE. [Concomitant]
     Active Substance: SPIRONOLACTONE
     Indication: CARDIAC FAILURE
     Dosage: 19.64 MG, UNK
     Route: 048
     Dates: start: 20170130, end: 20180331
  9. HYDRALAZINE [Concomitant]
     Active Substance: HYDRALAZINE HYDROCHLORIDE
     Indication: CARDIAC FAILURE
     Dosage: 30 MG, UNK
     Route: 048
     Dates: start: 20180404
  10. ENTRESTO [Suspect]
     Active Substance: SACUBITRIL\VALSARTAN
     Indication: CARDIAC FAILURE
     Dosage: 2 DF (49/51 MG  SACUBITRIL/VALSARTAN), UNK
     Route: 048
     Dates: start: 20161210, end: 20161220
  11. ENTRESTO [Suspect]
     Active Substance: SACUBITRIL\VALSARTAN
     Dosage: 2 DF (24MG SACUBITRIL/ 26MG VALSARTAN), UNK
     Route: 048
     Dates: start: 20180426, end: 20180513
  12. ENTRESTO [Suspect]
     Active Substance: SACUBITRIL\VALSARTAN
     Dosage: 4 DF (49/51 MG  SACUBITRIL/VALSARTAN), UNK
     Route: 048
     Dates: start: 20180627, end: 20180630
  13. HYDROCORTISONE. [Concomitant]
     Active Substance: HYDROCORTISONE
     Indication: PRODUCT USED FOR UNKNOWN INDICATION
     Route: 065
  14. ALLOPURINOL. [Concomitant]
     Active Substance: ALLOPURINOL
     Indication: CARDIAC FAILURE
     Dosage: 200 MG, UNK
     Route: 048
     Dates: start: 20160917
  15. ENTRESTO [Suspect]
     Active Substance: SACUBITRIL\VALSARTAN
     Dosage: 4 DF (49/51 MG  SACUBITRIL/VALSARTAN), UNK
     Route: 048
     Dates: start: 20180514, end: 20180610
  16. PRAVASTATIN. [Concomitant]
     Active Substance: PRAVASTATIN
     Indication: CARDIAC FAILURE
     Dosage: 40 MG, UNK
     Route: 048
     Dates: start: 20150917
  17. ENTRESTO [Suspect]
     Active Substance: SACUBITRIL\VALSARTAN
     Dosage: 2 DF (24MG SACUBITRIL/ 26MG VALSARTAN),NK
     Route: 048
     Dates: start: 20180406, end: 20180425
  18. ISOSORBIDE MONONITRATE. [Concomitant]
     Active Substance: ISOSORBIDE MONONITRATE
     Indication: CARDIAC FAILURE
     Dosage: 30 MG, UNK
     Route: 048
     Dates: start: 20180406

REACTIONS (8)
  - Hyperkalaemia [Recovered/Resolved]
  - Urinary tract infection [Recovered/Resolved]
  - Hyperkalaemia [Recovered/Resolved]
  - Seizure [Recovered/Resolved]
  - Dizziness postural [Recovered/Resolved]
  - Urinary tract infection [Recovered/Resolved]
  - Chronic obstructive pulmonary disease [Recovered/Resolved]
  - Concomitant disease aggravated [Recovered/Resolved]

NARRATIVE: CASE EVENT DATE: 20170525
